FAERS Safety Report 7574537-0 (Version None)
Quarter: 2011Q2

REPORT INFORMATION
  Report Type: 
  Country: None (occurrence: None)
  Receive Date: 20110627
  Receipt Date: 20110608
  Transmission Date: 20111010
  Serious: Yes (Other)
  Sender: FDA-Public Use
  Company Number: IE-BAYER-201031707GPV

PATIENT
  Age: 85 Year
  Sex: Female

DRUGS (6)
  1. CIPROFLOXACIN [Suspect]
     Indication: RASH ERYTHEMATOUS
     Route: 048
     Dates: start: 20100528
  2. ASPIRIN [Concomitant]
     Indication: PROPHYLAXIS
     Dosage: 75 MG (DAILY DOSE), , ORAL
     Route: 048
  3. AMILORIDE HYDROCHLORIDE W/FUROSEMIDE [Concomitant]
     Indication: PROPHYLAXIS
     Dosage: 120 MG (DAILY DOSE), , ORAL
     Route: 048
  4. ATORVASTATIN [Concomitant]
     Indication: PROPHYLAXIS
     Dosage: 10 MG (DAILY DOSE), , ORAL
     Route: 048
  5. MIRTAZAPINE [Concomitant]
     Dosage: 15 MG (DAILY DOSE), , ORAL
     Route: 048
  6. VERPAMIL HCL [Concomitant]
     Indication: PROPHYLAXIS
     Dosage: 120 MG (DAILY DOSE), , ORAL
     Route: 048

REACTIONS (7)
  - NECK PAIN [None]
  - PRURITUS [None]
  - ALOPECIA [None]
  - MALAISE [None]
  - BURNING SENSATION [None]
  - FACIAL PAIN [None]
  - MUSCULOSKELETAL PAIN [None]
